FAERS Safety Report 14114158 (Version 1)
Quarter: 2017Q4

REPORT INFORMATION
  Report Type: Spontaneous
  Country: JP (occurrence: JP)
  Receive Date: 20171023
  Receipt Date: 20171023
  Transmission Date: 20180321
  Serious: Yes (Hospitalization, Other)
  Sender: FDA-Public Use
  Company Number: JP-AMGEN-JPNSP2017160415

PATIENT
  Sex: Female

DRUGS (3)
  1. CARBOPLATIN. [Concomitant]
     Active Substance: CARBOPLATIN
     Indication: UTERINE CANCER
     Dosage: UNK
     Route: 065
  2. G-LASTA [Suspect]
     Active Substance: PEGFILGRASTIM
     Indication: COLONY STIMULATING FACTOR THERAPY
     Dosage: 3.6 MG, UNK
     Route: 058
  3. DOCETAXEL. [Concomitant]
     Active Substance: DOCETAXEL
     Indication: UTERINE CANCER
     Dosage: UNK
     Route: 065

REACTIONS (2)
  - Pyrexia [Recovered/Resolved]
  - Back pain [Unknown]
